FAERS Safety Report 4834450-6 (Version None)
Quarter: 2005Q4

REPORT INFORMATION
  Report Type: 
  Country: None (occurrence: None)
  Receive Date: 20051122
  Receipt Date: 20041116
  Transmission Date: 20060501
  Serious: No
  Sender: FDA-Public Use
  Company Number: US-BRISTOL-MYERS SQUIBB COMPANY-12766945

PATIENT
  Age: 72 Year
  Sex: Female
  Weight: 79 kg

DRUGS (3)
  1. PRAVACHOL [Suspect]
     Indication: BLOOD CHOLESTEROL INCREASED
     Route: 048
  2. CELEXA [Concomitant]
     Indication: DEPRESSION
  3. PRILOSEC [Concomitant]

REACTIONS (1)
  - DEPRESSION [None]
